FAERS Safety Report 20921601 (Version 1)
Quarter: 2022Q2

REPORT INFORMATION
  Report Type: Spontaneous
  Country: DE (occurrence: DE)
  Receive Date: 20220606
  Receipt Date: 20220606
  Transmission Date: 20220721
  Serious: Yes (Hospitalization)
  Sender: FDA-Public Use
  Company Number: DE-BEXIMCO-2022BEX00034

PATIENT
  Age: 47 Year
  Sex: Female
  Weight: 115 kg

DRUGS (6)
  1. METFORMIN HYDROCHLORIDE [Suspect]
     Active Substance: METFORMIN HYDROCHLORIDE
     Indication: Type 2 diabetes mellitus
     Dosage: 1 G, 2X/DAY
     Route: 065
  2. SITAGLIPTIN [Concomitant]
     Active Substance: SITAGLIPTIN
     Dosage: 50 MG, 2X/DAY
     Route: 065
  3. SITAGLIPTIN [Concomitant]
     Active Substance: SITAGLIPTIN
     Dosage: 25 MG, 2X/DAY
     Route: 065
  4. SITAGLIPTIN [Concomitant]
     Active Substance: SITAGLIPTIN
     Dosage: 50 MG, 2X/DAY
     Route: 065
  5. CANDESARTAN [Concomitant]
     Active Substance: CANDESARTAN
     Dosage: 16 MG, 2X/DAY
     Route: 065
  6. METOPROLOL [Concomitant]
     Active Substance: METOPROLOL
     Dosage: 47.5 MG, 2X/DAY
     Route: 065

REACTIONS (2)
  - Lactic acidosis [Recovered/Resolved]
  - Acute coronary syndrome [Recovered/Resolved]
